FAERS Safety Report 9182482 (Version 1)
Quarter: 2013Q1

REPORT INFORMATION
  Report Type: Spontaneous
  Country: US (occurrence: None)
  Receive Date: 20130321
  Receipt Date: 20130321
  Transmission Date: 20140127
  Serious: Yes (Life-Threatening)
  Sender: FDA-Public Use
  Company Number: None

PATIENT
  Age: 55 Year
  Sex: Female
  Weight: 54.43 kg

DRUGS (2)
  1. AMOXICILLIN [Suspect]
     Indication: TOOTHACHE
     Dosage: 500 MG. ONCE 12 HR
     Dates: start: 20130220
  2. AMOXICILLIN [Suspect]
     Indication: EAR PAIN
     Dosage: 500 MG. ONCE 12 HR
     Dates: start: 20130220

REACTIONS (5)
  - Tremor [None]
  - Skin infection [None]
  - Blood urine present [None]
  - Oral infection [None]
  - Pruritus generalised [None]
